FAERS Safety Report 21305640 (Version 4)
Quarter: 2023Q1

REPORT INFORMATION
  Report Type: Spontaneous
  Country: US (occurrence: US)
  Receive Date: 20220908
  Receipt Date: 20230106
  Transmission Date: 20230417
  Serious: Yes (Other)
  Sender: FDA-Public Use
  Company Number: US-BRISTOL-MYERS SQUIBB COMPANY-2022-100447

PATIENT
  Age: 78 Year
  Sex: Male

DRUGS (7)
  1. SPRYCEL [Suspect]
     Active Substance: DASATINIB
     Indication: Chronic lymphocytic leukaemia
     Dosage: DAILY
     Route: 048
     Dates: start: 20211229
  2. SPRYCEL [Suspect]
     Active Substance: DASATINIB
     Dosage: DAILY
     Route: 048
     Dates: start: 20210204, end: 20220901
  3. ISOSORBIDE [Concomitant]
     Active Substance: ISOSORBIDE
     Indication: Hypertension
     Route: 048
     Dates: start: 20211028
  4. METOPROLOL [Concomitant]
     Active Substance: METOPROLOL
     Indication: Hypertension
     Route: 048
     Dates: start: 20211028
  5. ROSUVASTATIN [Concomitant]
     Active Substance: ROSUVASTATIN
     Indication: Coronary artery disease
     Route: 048
     Dates: start: 20220720
  6. TAMSULOSIN [Concomitant]
     Active Substance: TAMSULOSIN
     Indication: Product used for unknown indication
     Dates: start: 20220224
  7. TIZANIDINE [Concomitant]
     Active Substance: TIZANIDINE
     Indication: Back pain
     Route: 048
     Dates: start: 20220713

REACTIONS (2)
  - Pleural effusion [Unknown]
  - Off label use [Unknown]
